FAERS Safety Report 10452455 (Version 1)
Quarter: 2014Q3

REPORT INFORMATION
  Report Type: Spontaneous
  Country: CA (occurrence: CA)
  Receive Date: 20140915
  Receipt Date: 20140915
  Transmission Date: 20150326
  Serious: Yes (Hospitalization, Other)
  Sender: FDA-Public Use
  Company Number: CA-JNJFOC-20140904355

PATIENT
  Age: 68 Year
  Sex: Male

DRUGS (10)
  1. GALEXOS [Suspect]
     Active Substance: SIMEPREVIR
     Indication: HEPATITIS C
  2. RIBAVIRIN. [Suspect]
     Active Substance: RIBAVIRIN
     Indication: HEPATITIS C
  3. SOVALDI [Suspect]
     Active Substance: SOFOSBUVIR
     Indication: HEPATITIS C
  4. LASIX [Concomitant]
     Active Substance: FUROSEMIDE
  5. LACTULOSE. [Concomitant]
     Active Substance: LACTULOSE
  6. CITALOPRAM [Concomitant]
     Active Substance: CITALOPRAM HYDROBROMIDE
  7. CLONAZEPAM. [Concomitant]
     Active Substance: CLONAZEPAM
  8. FUROSEMIDE. [Concomitant]
     Active Substance: FUROSEMIDE
  9. TRAZODONE [Concomitant]
     Active Substance: TRAZODONE HYDROCHLORIDE
  10. AMILORIDE [Concomitant]
     Active Substance: AMILORIDE

REACTIONS (8)
  - Encephalopathy [Recovered/Resolved]
  - Malaise [Recovered/Resolved]
  - Abdominal pain [Recovered/Resolved]
  - Off label use [Recovered/Resolved]
  - Jaundice [Recovered/Resolved]
  - Peritonitis bacterial [Recovered/Resolved]
  - Ascites [Recovered/Resolved]
  - Hepatic failure [Recovered/Resolved]

NARRATIVE: CASE EVENT DATE: 20140327
